FAERS Safety Report 19605280 (Version 1)
Quarter: 2021Q3

REPORT INFORMATION
  Report Type: Report from Study
  Country: MX (occurrence: MX)
  Receive Date: 20210723
  Receipt Date: 20210723
  Transmission Date: 20211014
  Serious: Yes (Death, Other)
  Sender: FDA-Public Use
  Company Number: MX-UCBSA-2021035234

PATIENT
  Age: 76 Year
  Sex: Female
  Weight: 70 kg

DRUGS (3)
  1. ROTIGOTINE [Suspect]
     Active Substance: ROTIGOTINE
     Indication: PARKINSON^S DISEASE
     Dosage: 1 DOSAGE FORM, ONCE DAILY (QD)
     Route: 062
     Dates: start: 2019
  2. ROTIGOTINE [Suspect]
     Active Substance: ROTIGOTINE
     Dosage: .5 DOSAGE FORM, ONCE DAILY (.5 PATCH EVERY 24 HOURS)
     Route: 062
  3. ROTIGOTINE [Suspect]
     Active Substance: ROTIGOTINE
     Dosage: 0.25 DOSAGE FORM, ONCE DAILY (0.25 PATCH EVERY 24 HOURS)
     Route: 062

REACTIONS (3)
  - Hallucination [Recovered/Resolved]
  - COVID-19 pneumonia [Fatal]
  - Off label use [Unknown]

NARRATIVE: CASE EVENT DATE: 202011
